FAERS Safety Report 11780876 (Version 1)
Quarter: 2015Q4

REPORT INFORMATION
  Report Type: Spontaneous
  Country: US (occurrence: US)
  Receive Date: 20151126
  Receipt Date: 20151126
  Transmission Date: 20160305
  Serious: Yes (Hospitalization, Other)
  Sender: FDA-Public Use
  Company Number: US-BRISTOL-MYERS SQUIBB COMPANY-BMS-2015-078883

PATIENT
  Sex: Male

DRUGS (1)
  1. COUMADIN [Suspect]
     Active Substance: WARFARIN SODIUM
     Indication: ATRIAL FIBRILLATION
     Route: 048

REACTIONS (7)
  - Loss of consciousness [Unknown]
  - Transfusion [Unknown]
  - Haemorrhage [Recovered/Resolved]
  - Polyp [Unknown]
  - Polypectomy [Unknown]
  - Diarrhoea haemorrhagic [Unknown]
  - Muscle spasms [Unknown]
